FAERS Safety Report 5106096-6 (Version None)
Quarter: 2006Q3

REPORT INFORMATION
  Report Type: 
  Country: None (occurrence: None)
  Receive Date: 20060912
  Receipt Date: 20060831
  Transmission Date: 20061208
  Serious: Yes (Death, Hospitalization)
  Sender: FDA-Public Use
  Company Number: 430043M06USA

PATIENT
  Age: 70 Year
  Sex: Female
  Weight: 74.3 kg

DRUGS (3)
  1. NOVANTRONE [Suspect]
     Indication: ACUTE MYELOID LEUKAEMIA
     Dates: start: 20060808, end: 20060821
  2. ETOPOSIDE [Suspect]
     Dates: start: 20060808, end: 20060821
  3. CYTARABINE [Concomitant]
     Dates: start: 20060808, end: 20060821

REACTIONS (8)
  - APHASIA [None]
  - CAROTID ARTERY ANEURYSM [None]
  - CEREBRAL ARTERY OCCLUSION [None]
  - CEREBRAL HAEMORRHAGE [None]
  - CEREBRAL ISCHAEMIA [None]
  - COGNITIVE DISORDER [None]
  - LACUNAR INFARCTION [None]
  - MENTAL STATUS CHANGES [None]
